FAERS Safety Report 24108697 (Version 3)
Quarter: 2024Q3

REPORT INFORMATION
  Report Type: Spontaneous
  Country: US (occurrence: US)
  Receive Date: 20240718
  Receipt Date: 20240821
  Transmission Date: 20241016
  Serious: Yes (Hospitalization, Other)
  Sender: CELLTRION
  Company Number: US-CELLTRION INC.-2024US017192

PATIENT

DRUGS (2)
  1. ZYMFENTRA [Suspect]
     Active Substance: INFLIXIMAB-DYYB
     Indication: Crohn^s disease
     Dosage: 120 MG SUBCUTANEOUSLY EVERY OTHER WEEK
     Route: 058
     Dates: start: 20240625
  2. ZYMFENTRA [Suspect]
     Active Substance: INFLIXIMAB-DYYB
     Dosage: 120 MG SUBCUTANEOUSLY EVERY OTHER WEEK
     Route: 058
     Dates: start: 20240709

REACTIONS (1)
  - Crohn^s disease [Recovered/Resolved]
